FAERS Safety Report 20801448 (Version 2)
Quarter: 2022Q2

REPORT INFORMATION
  Report Type: Spontaneous
  Country: ID (occurrence: ID)
  Receive Date: 20220509
  Receipt Date: 20220615
  Transmission Date: 20220721
  Serious: No
  Sender: FDA-Public Use
  Company Number: ID-LUPIN PHARMACEUTICALS INC.-2022-06579

PATIENT
  Age: 24 Year
  Sex: Female

DRUGS (14)
  1. HYDROCORTISONE VALERATE [Suspect]
     Active Substance: HYDROCORTISONE VALERATE
     Indication: Chronic cutaneous lupus erythematosus
     Dosage: UNK (ALL OVER THE BODY)
     Route: 061
  2. HYDROCORTISONE VALERATE [Suspect]
     Active Substance: HYDROCORTISONE VALERATE
     Indication: Systemic lupus erythematosus
  3. METHYLPREDNISOLONE [Suspect]
     Active Substance: METHYLPREDNISOLONE
     Indication: Chronic cutaneous lupus erythematosus
     Dosage: 32 MG
     Route: 065
  4. METHYLPREDNISOLONE [Suspect]
     Active Substance: METHYLPREDNISOLONE
     Indication: Systemic lupus erythematosus
  5. CALCIUM CARBONATE [Suspect]
     Active Substance: CALCIUM CARBONATE
     Indication: Chronic cutaneous lupus erythematosus
     Dosage: 1000 MILLIGRAM, TID
     Route: 065
  6. CALCIUM CARBONATE [Suspect]
     Active Substance: CALCIUM CARBONATE
     Indication: Systemic lupus erythematosus
  7. OMEPRAZOLE [Suspect]
     Active Substance: OMEPRAZOLE
     Indication: Chronic cutaneous lupus erythematosus
     Dosage: UNK
     Route: 065
  8. OMEPRAZOLE [Suspect]
     Active Substance: OMEPRAZOLE
     Indication: Systemic lupus erythematosus
  9. FOLIC ACID [Suspect]
     Active Substance: FOLIC ACID
     Indication: Chronic cutaneous lupus erythematosus
     Dosage: UNK
     Route: 065
  10. FOLIC ACID [Suspect]
     Active Substance: FOLIC ACID
     Indication: Systemic lupus erythematosus
  11. MOMETASONE FUROATE [Suspect]
     Active Substance: MOMETASONE FUROATE
     Indication: Chronic cutaneous lupus erythematosus
     Dosage: UNK (ON THE FACE)
     Route: 061
  12. MOMETASONE FUROATE [Suspect]
     Active Substance: MOMETASONE FUROATE
     Indication: Systemic lupus erythematosus
  13. UREA [Suspect]
     Active Substance: UREA
     Indication: Chronic cutaneous lupus erythematosus
     Dosage: UNK
     Route: 065
  14. UREA [Suspect]
     Active Substance: UREA
     Indication: Systemic lupus erythematosus

REACTIONS (2)
  - Off label use [Unknown]
  - Exposure during pregnancy [Unknown]
